FAERS Safety Report 8032432-7 (Version None)
Quarter: 2012Q1

REPORT INFORMATION
  Report Type: 
  Country: None (occurrence: None)
  Receive Date: 20120109
  Receipt Date: 20120109
  Transmission Date: 20120608
  Serious: Yes (Hospitalization)
  Sender: FDA-Public Use
  Company Number: None

PATIENT
  Age: 67 Year
  Sex: Male
  Weight: 65.7716 kg

DRUGS (8)
  1. CRESTOR [Concomitant]
  2. ERLOTINIB HYDROCHLORIDE [Suspect]
     Indication: NON-SMALL CELL LUNG CANCER
     Dosage: 150MG DAILY ORAL
     Route: 048
     Dates: start: 20111123, end: 20111215
  3. NEXIUM [Concomitant]
  4. METOPROLOL SUCCINATE [Concomitant]
  5. LANTUS [Concomitant]
  6. ADVAIR DISKUS 100/50 [Concomitant]
  7. PREDNISONE TAB [Concomitant]
  8. PROGRAF [Concomitant]

REACTIONS (8)
  - HYPONATRAEMIA [None]
  - DEHYDRATION [None]
  - RASH [None]
  - HYPERKALAEMIA [None]
  - BLOOD BILIRUBIN ABNORMAL [None]
  - RENAL FAILURE [None]
  - LYMPHOPENIA [None]
  - DIARRHOEA [None]
